FAERS Safety Report 15692992 (Version 1)
Quarter: 2018Q4

REPORT INFORMATION
  Report Type: Spontaneous
  Country: US (occurrence: US)
  Receive Date: 20181206
  Receipt Date: 20181206
  Transmission Date: 20190205
  Serious: Yes (Other)
  Sender: FDA-Public Use
  Company Number: US-NOVEN PHARMACEUTICALS, INC.-US2018000662

PATIENT

DRUGS (6)
  1. TRAZODONE [Concomitant]
     Active Substance: TRAZODONE HYDROCHLORIDE
     Indication: MAJOR DEPRESSION
  2. MINIVELLE [Suspect]
     Active Substance: ESTRADIOL
     Indication: NIGHT SWEATS
     Dosage: 0.075 MG, EVERY 3.5 DAYS
     Route: 062
  3. MINIVELLE [Suspect]
     Active Substance: ESTRADIOL
     Indication: OSTEOPOROSIS PROPHYLAXIS
     Dosage: USING TWO PATCHES (0.1 MG + 0.075 MG)  TOGETHER, EVERY 3.5 DAYS
     Route: 062
  4. TYROSINE [Concomitant]
     Active Substance: TYROSINE
     Indication: HYPOTHYROIDISM
  5. ARMOUR THYROID [Concomitant]
     Active Substance: THYROID, PORCINE
     Indication: HYPOTHYROIDISM
  6. MINIVELLE [Suspect]
     Active Substance: ESTRADIOL
     Indication: HOT FLUSH
     Dosage: 0.025 MG, EVERY 3.5 DAYS
     Route: 062

REACTIONS (8)
  - Off label use [Not Recovered/Not Resolved]
  - Incorrect product administration duration [Recovered/Resolved]
  - Suicidal ideation [Recovered/Resolved]
  - Night sweats [Unknown]
  - Therapy cessation [Recovered/Resolved]
  - Prescribed overdose [Not Recovered/Not Resolved]
  - Wrong technique in product usage process [Not Recovered/Not Resolved]
  - Depressed mood [Unknown]
